FAERS Safety Report 6670836-5 (Version None)
Quarter: 2010Q2

REPORT INFORMATION
  Report Type: 
  Country: None (occurrence: None)
  Receive Date: 20100407
  Receipt Date: 20100329
  Transmission Date: 20101027
  Serious: Yes (Other)
  Sender: FDA-Public Use
  Company Number: US-BAYER-201018018NA

PATIENT
  Sex: Female

DRUGS (3)
  1. MAGNEVIST [Suspect]
     Indication: DRUG USE FOR UNKNOWN INDICATION
     Dates: start: 20060620, end: 20060620
  2. MAGNEVIST [Suspect]
     Dates: start: 20070112, end: 20070112
  3. MAGNEVIST [Suspect]
     Dates: start: 20070503, end: 20070503

REACTIONS (5)
  - DEFORMITY [None]
  - GENERAL PHYSICAL HEALTH DETERIORATION [None]
  - MOBILITY DECREASED [None]
  - NEPHROGENIC SYSTEMIC FIBROSIS [None]
  - PAIN [None]
